FAERS Safety Report 24570497 (Version 1)
Quarter: 2024Q4

REPORT INFORMATION
  Report Type: Spontaneous
  Country: JP (occurrence: JP)
  Receive Date: 20241031
  Receipt Date: 20241031
  Transmission Date: 20250114
  Serious: Yes (Death, Other)
  Sender: BRISTOL-MYERS SQUIBB COMPANY
  Company Number: JP-BRISTOL-MYERS SQUIBB COMPANY-2024-170137

PATIENT
  Age: 64 Year
  Sex: Male

DRUGS (5)
  1. ABECMA [Suspect]
     Active Substance: IDECABTAGENE VICLEUCEL
     Indication: Plasma cell myeloma refractory
     Dosage: CELLS COUNT 59X10^6/?L
     Route: 041
     Dates: start: 202404
  2. ELRANATAMAB [Concomitant]
     Active Substance: ELRANATAMAB
     Indication: Plasma cell myeloma refractory
     Dates: start: 202408
  3. VINCRISTINE [Concomitant]
     Active Substance: VINCRISTINE
     Indication: Plasma cell myeloma refractory
     Dates: start: 202409
  4. DOXORUBICIN [Concomitant]
     Active Substance: DOXORUBICIN
     Indication: Plasma cell myeloma refractory
     Dates: start: 202409
  5. DEXAMETHASONE [Concomitant]
     Active Substance: DEXAMETHASONE
     Indication: Plasma cell myeloma refractory
     Dates: start: 202409

REACTIONS (1)
  - Death [Fatal]
